FAERS Safety Report 16171144 (Version 5)
Quarter: 2019Q3

REPORT INFORMATION
  Report Type: Spontaneous
  Country: CH (occurrence: CH)
  Receive Date: 20190408
  Receipt Date: 20190722
  Transmission Date: 20191004
  Serious: Yes (Hospitalization)
  Sender: FDA-Public Use
  Company Number: CH-MYLANLABS-2019M1031834

PATIENT
  Age: 62 Year
  Sex: Male

DRUGS (3)
  1. EPIPEN [Suspect]
     Active Substance: EPINEPHRINE
     Indication: CARDIAC ARREST
     Dosage: UNK UNK, ONCE
     Dates: start: 20190327, end: 20190327
  2. EPIPEN [Suspect]
     Active Substance: EPINEPHRINE
     Dosage: UNK UNK, ONCE
     Dates: start: 20190327, end: 20190327
  3. EXFORGE [Concomitant]
     Active Substance: AMLODIPINE BESYLATE\VALSARTAN
     Dosage: UNK

REACTIONS (5)
  - Needle issue [Unknown]
  - Device failure [Unknown]
  - Device use issue [Unknown]
  - Product dose omission [Unknown]
  - Off label use [Unknown]

NARRATIVE: CASE EVENT DATE: 20190327
